FAERS Safety Report 7404820-0 (Version None)
Quarter: 2011Q2

REPORT INFORMATION
  Report Type: 
  Country: None (occurrence: None)
  Receive Date: 20110411
  Receipt Date: 20110330
  Transmission Date: 20111010
  Serious: Yes (Other)
  Sender: FDA-Public Use
  Company Number: DE-BAYER-2011-023968

PATIENT
  Age: 40 Year
  Sex: Female
  Weight: 53.968 kg

DRUGS (2)
  1. QLAIRA FILMTABLETTEN [Suspect]
     Indication: PRODUCT USED FOR UNKNOWN INDICATION
     Dosage: UNK
     Dates: start: 20100401, end: 20110301
  2. LEVOTHYROXINE SODIUM [Concomitant]

REACTIONS (4)
  - CARDIAC DISCOMFORT [None]
  - BUNDLE BRANCH BLOCK LEFT [None]
  - TACHYCARDIA [None]
  - ARRHYTHMIA [None]
